APPROVED DRUG PRODUCT: DEXTROAMPHETAMINE SULFATE
Active Ingredient: DEXTROAMPHETAMINE SULFATE
Strength: 5MG/5ML
Dosage Form/Route: SOLUTION;ORAL
Application: A203644 | Product #001 | TE Code: AA
Applicant: TRIS PHARMA INC
Approved: May 29, 2013 | RLD: No | RS: No | Type: RX